FAERS Safety Report 17510859 (Version 1)
Quarter: 2020Q1

REPORT INFORMATION
  Report Type: Spontaneous
  Country: US (occurrence: US)
  Receive Date: 20200306
  Receipt Date: 20200306
  Transmission Date: 20200409
  Serious: No
  Sender: FDA-Public Use
  Company Number: US-HARMONY BIOSCIENCES-2020HMY00098

PATIENT
  Sex: Male

DRUGS (2)
  1. WAKIX [Suspect]
     Active Substance: PITOLISANT HYDROCHLORIDE
     Dosage: UNK
     Dates: start: 20191213
  2. WAKIX [Suspect]
     Active Substance: PITOLISANT HYDROCHLORIDE
     Dosage: UNK
     Dates: start: 20191213

REACTIONS (3)
  - Nightmare [Not Recovered/Not Resolved]
  - Middle insomnia [Not Recovered/Not Resolved]
  - Abnormal dreams [Not Recovered/Not Resolved]

NARRATIVE: CASE EVENT DATE: 20200103
